FAERS Safety Report 7494910-9 (Version None)
Quarter: 2011Q2

REPORT INFORMATION
  Report Type: 
  Country: None (occurrence: None)
  Receive Date: 20110520
  Receipt Date: 20110506
  Transmission Date: 20111010
  Serious: Yes (Other)
  Sender: FDA-Public Use
  Company Number: US-BAYER-2011-040008

PATIENT
  Age: 42 Year
  Sex: Male

DRUGS (3)
  1. ASPIRIN [Suspect]
     Indication: SUICIDE ATTEMPT
     Dosage: UNK
     Dates: start: 20110429
  2. NYQUIL [Suspect]
     Indication: SUICIDE ATTEMPT
     Dosage: UNK
     Dates: start: 20110429
  3. TYLENOL PM [Suspect]
     Indication: SUICIDE ATTEMPT
     Dosage: UNK
     Dates: start: 20110429

REACTIONS (1)
  - CONSCIOUSNESS FLUCTUATING [None]
